FAERS Safety Report 13725732 (Version 1)
Quarter: 2017Q3

REPORT INFORMATION
  Report Type: Spontaneous
  Country: US (occurrence: US)
  Receive Date: 20170707
  Receipt Date: 20170707
  Transmission Date: 20171127
  Serious: Yes (Other)
  Sender: FDA-Public Use
  Company Number: US-BEH-2017081833

PATIENT
  Age: 64 Year
  Sex: Female
  Weight: 126.8 kg

DRUGS (24)
  1. ACETAMINOPHEN. [Concomitant]
     Active Substance: ACETAMINOPHEN
  2. EPINEPHRINE. [Concomitant]
     Active Substance: EPINEPHRINE
  3. LEVOTHYROXINE. [Concomitant]
     Active Substance: LEVOTHYROXINE
  4. COENZYME Q10 [Concomitant]
     Active Substance: UBIDECARENONE
  5. LORATADINE. [Concomitant]
     Active Substance: LORATADINE
  6. PULMICORT TURBUHALER [Concomitant]
     Active Substance: BUDESONIDE
  7. VITAMIN C [Concomitant]
     Active Substance: ASCORBIC ACID
  8. TRAZODONE [Concomitant]
     Active Substance: TRAZODONE HYDROCHLORIDE
  9. HIZENTRA [Suspect]
     Active Substance: HUMAN IMMUNOGLOBULIN G
     Dosage: UNK
     Route: 058
  10. LANTUS [Concomitant]
     Active Substance: INSULIN GLARGINE
  11. VITAMIN E                          /00110501/ [Concomitant]
     Active Substance: TOCOPHEROL
  12. ATROVENT [Concomitant]
     Active Substance: IPRATROPIUM BROMIDE
  13. DIPHENHYDRAMINE. [Concomitant]
     Active Substance: DIPHENHYDRAMINE
  14. LOSARTAN AND HYDROCHLOROTHIAZIDE [Concomitant]
     Active Substance: HYDROCHLOROTHIAZIDE\LOSARTAN POTASSIUM
  15. CEFDINIR. [Concomitant]
     Active Substance: CEFDINIR
  16. NOVOLOG [Concomitant]
     Active Substance: INSULIN ASPART
  17. IBUPROFEN. [Concomitant]
     Active Substance: IBUPROFEN
  18. LIDOCAINE. [Concomitant]
     Active Substance: LIDOCAINE
  19. FLONASE [Concomitant]
     Active Substance: FLUTICASONE PROPIONATE
  20. HIZENTRA [Suspect]
     Active Substance: HUMAN IMMUNOGLOBULIN G
     Indication: IMMUNODEFICIENCY COMMON VARIABLE
     Dosage: 12 G, UNK
     Route: 058
     Dates: start: 20170413
  21. HIZENTRA [Suspect]
     Active Substance: HUMAN IMMUNOGLOBULIN G
     Dosage: UNK
     Route: 058
  22. MULTIVITAMINS [Concomitant]
     Active Substance: VITAMINS
  23. VITAMIN D3 [Concomitant]
     Active Substance: CHOLECALCIFEROL
  24. SUPER B COMPLEX                    /01995301/ [Concomitant]
     Active Substance: CYANOCOBALAMIN\DEXPANTHENOL\NIACINAMIDE\PYRIDOXINE HYDROCHLORIDE\RIBOFLAVIN 5^-PHOSPHATE SODIUM\THIAMINE HYDROCHLORIDE\VITAMIN B COMPLEX

REACTIONS (3)
  - Therapeutic response decreased [Unknown]
  - Hypotrichosis [Unknown]
  - Blood glucose increased [Unknown]

NARRATIVE: CASE EVENT DATE: 201706
